FAERS Safety Report 19836126 (Version 1)
Quarter: 2021Q3

REPORT INFORMATION
  Report Type: Spontaneous
  Country: US (occurrence: US)
  Receive Date: 20210915
  Receipt Date: 20210915
  Transmission Date: 20211014
  Serious: No
  Sender: FDA-Public Use
  Company Number: US-BIOHAVEN PHARMACEUTICALS-2021BHV01010

PATIENT
  Age: 50 Year
  Sex: Female
  Weight: 81.63 kg

DRUGS (6)
  1. NURTEC ODT [Suspect]
     Active Substance: RIMEGEPANT SULFATE
     Indication: MIGRAINE PROPHYLAXIS
  2. AIMOVIG [Concomitant]
     Active Substance: ERENUMAB-AOOE
  3. NURTEC ODT [Suspect]
     Active Substance: RIMEGEPANT SULFATE
     Indication: MIGRAINE
     Dosage: 75 MG, 1X/DAY
     Route: 048
     Dates: start: 20210804, end: 20210806
  4. MAGNESIUM [Concomitant]
     Active Substance: MAGNESIUM
  5. UNSPECIFIED VITAMINS [Concomitant]
     Active Substance: VITAMINS
  6. TRAZODONE [Concomitant]
     Active Substance: TRAZODONE HYDROCHLORIDE
     Dosage: AT NIGHT

REACTIONS (1)
  - Periorbital pain [Recovered/Resolved]

NARRATIVE: CASE EVENT DATE: 20210804
